FAERS Safety Report 13716609 (Version 3)
Quarter: 2017Q4

REPORT INFORMATION
  Report Type: Report from Study
  Country: US (occurrence: US)
  Receive Date: 20170705
  Receipt Date: 20171004
  Transmission Date: 20180320
  Serious: Yes (Hospitalization)
  Sender: FDA-Public Use
  Company Number: US-BAYER-2017-088354

PATIENT
  Age: 62 Year
  Sex: Male

DRUGS (2)
  1. XOFIGO [Suspect]
     Active Substance: RADIUM RA-223 DICHLORIDE
     Indication: METASTASES TO BONE
     Dosage: 4 WEEKS
     Route: 042
     Dates: start: 20170530
  2. XOFIGO [Suspect]
     Active Substance: RADIUM RA-223 DICHLORIDE
     Indication: PROSTATE CANCER STAGE IV
     Dosage: EVERY 4 WEEKS
     Route: 042
     Dates: start: 20170411, end: 20170411

REACTIONS (3)
  - Prostate cancer stage IV [None]
  - Pancytopenia [None]
  - Blood test abnormal [None]
